FAERS Safety Report 5195633-1 (Version None)
Quarter: 2006Q4

REPORT INFORMATION
  Report Type: 
  Country: None (occurrence: None)
  Receive Date: 20061222
  Receipt Date: 20061222
  Transmission Date: 20070319
  Serious: Yes (Other)
  Sender: FDA-Public Use
  Company Number: None

PATIENT
  Sex: Male

DRUGS (3)
  1. HUMIRA [Suspect]
     Indication: RHEUMATOID ARTHRITIS
     Dosage: 40 MG Q 2 WEEKS SQ
     Route: 058
     Dates: start: 20030724, end: 20061101
  2. METHOTREXATE [Concomitant]
  3. REMICADE [Concomitant]

REACTIONS (1)
  - MALIGNANT MELANOMA [None]
